FAERS Safety Report 22099292 (Version 3)
Quarter: 2023Q1

REPORT INFORMATION
  Report Type: Spontaneous
  Country: US (occurrence: US)
  Receive Date: 20230315
  Receipt Date: 20230331
  Transmission Date: 20230418
  Serious: No
  Sender: FDA-Public Use
  Company Number: US-UNITED THERAPEUTICS-UNT-2023-006125

PATIENT
  Sex: Female
  Weight: 74.83 kg

DRUGS (13)
  1. ORENITRAM [Suspect]
     Active Substance: TREPROSTINIL
     Indication: Pulmonary arterial hypertension
     Dosage: 2 MG, TID
     Route: 048
     Dates: start: 20230209
  2. ORENITRAM [Suspect]
     Active Substance: TREPROSTINIL
     Dosage: 5 MG, TID
     Route: 048
  3. ORENITRAM [Suspect]
     Active Substance: TREPROSTINIL
     Dosage: 3 MG, TID
     Route: 048
  4. ORENITRAM [Suspect]
     Active Substance: TREPROSTINIL
     Dosage: 4 MG, TID
     Route: 048
  5. ORENITRAM [Suspect]
     Active Substance: TREPROSTINIL
     Indication: Pulmonary arterial hypertension
     Dosage: UNK
     Route: 048
  6. ORENITRAM [Suspect]
     Active Substance: TREPROSTINIL
     Dosage: UNK
     Route: 048
  7. ORENITRAM [Suspect]
     Active Substance: TREPROSTINIL
     Indication: Pulmonary arterial hypertension
     Dosage: UNK
     Route: 048
  8. VELETRI [Suspect]
     Active Substance: EPOPROSTENOL
     Indication: Pulmonary arterial hypertension
     Dosage: 0.030 ?G/KG, CONTINUING
     Route: 042
  9. VELETRI [Suspect]
     Active Substance: EPOPROSTENOL
     Dosage: 0.035 ?G/KG, CONTINUING
     Route: 042
  10. VELETRI [Suspect]
     Active Substance: EPOPROSTENOL
     Dosage: 0.025 ?G/KG, CONTINUING
     Route: 042
  11. VELETRI [Suspect]
     Active Substance: EPOPROSTENOL
     Dosage: UNK, CONTINUING
     Route: 042
  12. OPSUMIT [Concomitant]
     Active Substance: MACITENTAN
     Indication: Product used for unknown indication
     Dosage: UNK
     Route: 065
  13. SILDENAFIL CITRATE [Concomitant]
     Active Substance: SILDENAFIL CITRATE
     Indication: Product used for unknown indication
     Dosage: UNK
     Route: 065

REACTIONS (11)
  - Headache [Unknown]
  - Nausea [Unknown]
  - Anxiety [Unknown]
  - Stress [Unknown]
  - Pain in jaw [Unknown]
  - Pain in extremity [Unknown]
  - Flushing [Unknown]
  - Palpitations [Recovered/Resolved]
  - Weight decreased [Unknown]
  - Abdominal discomfort [Unknown]
  - Vomiting [Unknown]
